FAERS Safety Report 19375932 (Version 1)
Quarter: 2021Q2

REPORT INFORMATION
  Report Type: Spontaneous
  Country: GB (occurrence: GB)
  Receive Date: 20210604
  Receipt Date: 20210604
  Transmission Date: 20210717
  Serious: Yes (Hospitalization, Other)
  Sender: FDA-Public Use
  Company Number: GB-ALVOGEN-2021-ALVOGEN-117064

PATIENT
  Age: 65 Year
  Sex: Male
  Weight: 92.5 kg

DRUGS (2)
  1. LISINOPRIL. [Suspect]
     Active Substance: LISINOPRIL
     Indication: HYPERTENSION
     Dosage: 5 UNITS TWO TIMES A DAY
     Route: 048
     Dates: start: 20180202, end: 20210420
  2. TOZINAMERAN. [Concomitant]
     Active Substance: TOZINAMERAN
     Indication: PRODUCT USED FOR UNKNOWN INDICATION

REACTIONS (3)
  - Basal cell carcinoma [Recovered/Resolved]
  - Skin cancer [Recovered/Resolved with Sequelae]
  - Psoriasis [Recovering/Resolving]

NARRATIVE: CASE EVENT DATE: 20200101
